FAERS Safety Report 6417785-5 (Version None)
Quarter: 2009Q4

REPORT INFORMATION
  Report Type: 
  Country: None (occurrence: None)
  Receive Date: 20091028
  Receipt Date: 20091013
  Transmission Date: 20100525
  Serious: Yes (Hospitalization)
  Sender: FDA-Public Use
  Company Number: JP-AVENTIS-200912647JP

PATIENT
  Age: 52 Year
  Sex: Female
  Weight: 36 kg

DRUGS (9)
  1. ALLEGRA [Suspect]
     Route: 048
     Dates: start: 20090825, end: 20090914
  2. MYSLEE [Suspect]
     Indication: INSOMNIA
     Route: 048
     Dates: start: 20090824, end: 20090914
  3. ZYRTEC [Suspect]
     Route: 048
     Dates: start: 20090827, end: 20090904
  4. ATARAX [Suspect]
     Route: 048
     Dates: start: 20090823, end: 20090914
  5. FAMOTIDINE [Suspect]
     Indication: GASTRIC MUCOSAL LESION
     Route: 042
     Dates: start: 20090823, end: 20090902
  6. AMOBAN [Concomitant]
  7. EURODIN                            /00401202/ [Concomitant]
  8. BIBITTOACE [Concomitant]
  9. RINDERON                           /00008501/ [Concomitant]
     Dates: end: 20090915

REACTIONS (2)
  - LIVER DISORDER [None]
  - OFF LABEL USE [None]
